FAERS Safety Report 5404269-6 (Version None)
Quarter: 2007Q3

REPORT INFORMATION
  Report Type: 
  Country: None (occurrence: None)
  Receive Date: 20070731
  Receipt Date: 20070724
  Transmission Date: 20080115
  Serious: Yes (Death, Hospitalization)
  Sender: FDA-Public Use
  Company Number: 16721

PATIENT
  Age: 60 Year
  Sex: Female

DRUGS (20)
  1. NIPENT [Suspect]
     Indication: NON-HODGKIN'S LYMPHOMA STAGE IV
     Dosage: 8 MG Q21DAYS IV
     Route: 042
     Dates: start: 20070522
  2. CYTOXAN [Suspect]
     Indication: NON-HODGKIN'S LYMPHOMA STAGE IV
     Dosage: 1200 MG Q21DAYS IV
     Route: 042
     Dates: start: 20070522
  3. RITUXAN [Suspect]
     Indication: NON-HODGKIN'S LYMPHOMA STAGE IV
     Dosage: 750 MG Q21DAYS IV
     Route: 042
     Dates: start: 20070529
  4. ENALAPRIL MALEATE [Concomitant]
  5. LEVOTHYROXINE SODIUM [Concomitant]
  6. FUROSEMIDE [Concomitant]
  7. FOLIC ACID [Concomitant]
  8. POTASSIUM CHLORIDE [Concomitant]
  9. FLUVASTATIN [Concomitant]
  10. CARVEDILOL [Concomitant]
  11. ASPIRIN [Concomitant]
  12. FISH OIL [Concomitant]
  13. PROCHLORPERAZINE [Concomitant]
  14. ALLOPURINOL [Concomitant]
  15. ACYCLOVIR [Concomitant]
  16. TRIMETHOPRIM [Concomitant]
  17. SULFAMETHOXAZOLE [Concomitant]
  18. ONDANSETRON [Concomitant]
  19. SIMETHICONE [Concomitant]
  20. PEGFILGRASTIM [Concomitant]

REACTIONS (2)
  - GASTRITIS [None]
  - SEPSIS [None]
